FAERS Safety Report 14248786 (Version 2)
Quarter: 2017Q4

REPORT INFORMATION
  Report Type: Spontaneous
  Country: FR (occurrence: FR)
  Receive Date: 20171204
  Receipt Date: 20171220
  Transmission Date: 20180321
  Serious: Yes (Hospitalization, Other)
  Sender: FDA-Public Use
  Company Number: PHHY2017FR177315

PATIENT
  Age: 49 Year
  Sex: Female
  Weight: 51 kg

DRUGS (5)
  1. AFINITOR [Suspect]
     Active Substance: EVEROLIMUS
     Dosage: 10 MG, UNK
     Route: 048
     Dates: start: 20171008, end: 20171031
  2. AFINITOR [Suspect]
     Active Substance: EVEROLIMUS
     Dosage: 7.5 MG, QD
     Route: 065
     Dates: start: 20171108, end: 20171113
  3. AROMAZIN [Suspect]
     Active Substance: EXEMESTANE
     Indication: BREAST CANCER
     Dosage: UNK
     Route: 065
     Dates: start: 20170811, end: 20170903
  4. AFINITOR [Suspect]
     Active Substance: EVEROLIMUS
     Indication: BREAST CANCER METASTATIC
     Dosage: 10 MG, UNK
     Route: 048
     Dates: start: 20170811, end: 20170903
  5. AROMAZIN [Suspect]
     Active Substance: EXEMESTANE
     Dosage: UNK
     Route: 065
     Dates: start: 20171008, end: 20171121

REACTIONS (5)
  - Transaminases increased [Recovering/Resolving]
  - Skin lesion [Recovering/Resolving]
  - Neutropenia [Unknown]
  - Hepatitis [Recovering/Resolving]
  - Cough [Recovering/Resolving]

NARRATIVE: CASE EVENT DATE: 20171028
